FAERS Safety Report 11121380 (Version 1)
Quarter: 2015Q2

REPORT INFORMATION
  Report Type: Spontaneous
  Country: FR (occurrence: None)
  Receive Date: 20150515
  Receipt Date: 20150515
  Transmission Date: 20150821
  Serious: Yes (Death, Other)
  Sender: FDA-Public Use
  Company Number: 2015FR0236

PATIENT
  Age: 34 Year
  Sex: Male

DRUGS (3)
  1. KINERET [Suspect]
     Active Substance: ANAKINRA
     Indication: PERICARDITIS
     Dosage: 100 MG (100 MG, 1 IN 1 D), SUBCUTANEOUS
     Route: 058
     Dates: start: 201210
  2. CORTICOIDES (CORTICOSTEROIDS) [Concomitant]
  3. COLCHICINE. [Concomitant]
     Active Substance: COLCHICINE

REACTIONS (4)
  - Cardiac arrest [None]
  - Malaise [None]
  - Drowning [None]
  - Dizziness [None]

NARRATIVE: CASE EVENT DATE: 201504
